FAERS Safety Report 17146077 (Version 1)
Quarter: 2019Q4

REPORT INFORMATION
  Report Type: Spontaneous
  Country: US (occurrence: US)
  Receive Date: 20191120
  Receipt Date: 20191120
  Transmission Date: 20200122
  Serious: No
  Sender: FDA-Public Use
  Company Number: None

PATIENT
  Sex: Female

DRUGS (1)
  1. IMATINIB MESYLATE TEVA PHARMACEUTICALS USA [Suspect]
     Active Substance: IMATINIB MESYLATE
     Indication: HEAD AND NECK CANCER
     Route: 048
     Dates: start: 20191108

REACTIONS (4)
  - Back pain [None]
  - Asthenia [None]
  - Energy increased [None]
  - Somnolence [None]
